FAERS Safety Report 8219070-8 (Version None)
Quarter: 2012Q1

REPORT INFORMATION
  Report Type: 
  Country: None (occurrence: None)
  Receive Date: 20120319
  Receipt Date: 20120308
  Transmission Date: 20120608
  Serious: Yes (Disabling)
  Sender: FDA-Public Use
  Company Number: AU-BRISTOL-MYERS SQUIBB COMPANY-16413197

PATIENT
  Age: 26 Year
  Sex: Male
  Weight: 66 kg

DRUGS (2)
  1. EFAVIRENZ [Suspect]
     Indication: HIV INFECTION
     Route: 048
     Dates: start: 20111212, end: 20120216
  2. TRUVADA [Suspect]
     Indication: HIV INFECTION
     Dosage: 1 DF= 300/200 UNIT NOS
     Route: 048
     Dates: start: 20111212

REACTIONS (4)
  - MOOD SWINGS [None]
  - NERVOUS SYSTEM DISORDER [None]
  - DEPRESSION [None]
  - SLEEP DISORDER [None]
